FAERS Safety Report 9859659 (Version 3)
Quarter: 2014Q1

REPORT INFORMATION
  Report Type: Spontaneous
  Country: US (occurrence: US)
  Receive Date: 20140131
  Receipt Date: 20140324
  Transmission Date: 20141002
  Serious: Yes (Congenital Anomaly)
  Sender: FDA-Public Use
  Company Number: US-GLAXOSMITHKLINE-A1051461A

PATIENT
  Age: 0 Day
  Sex: Male
  Weight: 3 kg

DRUGS (2)
  1. REQUIP [Suspect]
     Indication: RESTLESS LEGS SYNDROME
     Route: 064
     Dates: start: 2007, end: 20070928
  2. SYNTHROID [Concomitant]

REACTIONS (13)
  - Sensory integrative dysfunction [Not Recovered/Not Resolved]
  - Attention deficit/hyperactivity disorder [Not Recovered/Not Resolved]
  - Crying [Unknown]
  - Foetal exposure during pregnancy [Unknown]
  - Buried penis syndrome [Unknown]
  - Oppositional defiant disorder [Unknown]
  - Motor dysfunction [Unknown]
  - Balance disorder [Unknown]
  - Anxiety [Unknown]
  - Developmental delay [Unknown]
  - Musculoskeletal stiffness [Unknown]
  - Dyskinesia [Unknown]
  - Muscular weakness [Unknown]
